FAERS Safety Report 5143288-4 (Version None)
Quarter: 2006Q4

REPORT INFORMATION
  Report Type: 
  Country: None (occurrence: None)
  Receive Date: 20061103
  Receipt Date: 20061013
  Transmission Date: 20070319
  Serious: Yes (Other)
  Sender: FDA-Public Use
  Company Number: 2006UW20332

PATIENT
  Age: 43 Year
  Sex: Female

DRUGS (5)
  1. NOLVADEX [Suspect]
     Indication: BREAST CANCER
     Route: 048
     Dates: start: 20060401, end: 20060501
  2. HYDROMORPHONE CONTIN [Concomitant]
  3. DILAUDID [Concomitant]
  4. CLONAZEPAM [Concomitant]
  5. AMITRIPTYLINE HCL [Concomitant]

REACTIONS (5)
  - DYSKINESIA [None]
  - MALAISE [None]
  - MOTOR DYSFUNCTION [None]
  - MUSCLE SPASMS [None]
  - MUSCULAR WEAKNESS [None]
